FAERS Safety Report 5597473-8 (Version None)
Quarter: 2008Q1

REPORT INFORMATION
  Report Type: 
  Country: None (occurrence: None)
  Receive Date: 20080117
  Receipt Date: 20080107
  Transmission Date: 20080703
  Serious: Yes (Other)
  Sender: FDA-Public Use
  Company Number: TPA2007A01000

PATIENT
  Age: 56 Year
  Sex: Male

DRUGS (11)
  1. ACTOS [Suspect]
     Dosage: PER ORAL
     Route: 048
     Dates: end: 20070409
  2. LIPITOR [Concomitant]
  3. ALLOPURINOL [Concomitant]
  4. COLCHICUM JTL LIQ [Concomitant]
  5. AMARYL [Concomitant]
  6. ASPIRIN [Concomitant]
  7. CHANTIX [Concomitant]
  8. CYMBALTA [Concomitant]
  9. PLAVIX [Concomitant]
  10. LISINOPRIL [Concomitant]
  11. COREG CR (CARVEDILOL) [Concomitant]

REACTIONS (18)
  - CARDIAC FAILURE CONGESTIVE [None]
  - CARDIAC STRESS TEST ABNORMAL [None]
  - CHEST PAIN [None]
  - CORONARY ARTERY DISEASE [None]
  - COUGH [None]
  - DIABETIC CARDIOMYOPATHY [None]
  - DRUG WITHDRAWAL SYNDROME [None]
  - DYSPNOEA [None]
  - EPISTAXIS [None]
  - FATIGUE [None]
  - FLUID RETENTION [None]
  - OEDEMA [None]
  - PALPITATIONS [None]
  - PARAESTHESIA [None]
  - PLEURAL EFFUSION [None]
  - THROAT IRRITATION [None]
  - VASCULAR ANOMALY [None]
  - WEIGHT INCREASED [None]
